FAERS Safety Report 20119438 (Version 4)
Quarter: 2023Q1

REPORT INFORMATION
  Report Type: Report from Study
  Country: US (occurrence: US)
  Receive Date: 20211126
  Receipt Date: 20230111
  Transmission Date: 20230417
  Serious: Yes (Hospitalization)
  Sender: FDA-Public Use
  Company Number: US-TAKEDA-2021TUS074504

PATIENT
  Age: 19 Year
  Sex: Male

DRUGS (12)
  1. IDURSULFASE [Suspect]
     Active Substance: IDURSULFASE
     Indication: Mucopolysaccharidosis II
     Dosage: 0.5 MILLIGRAM/KILOGRAM, 1/WEEK
     Route: 042
     Dates: start: 20070430
  2. CYPROHEPTADINE HYDROCHLORIDE [Concomitant]
     Active Substance: CYPROHEPTADINE HYDROCHLORIDE
     Indication: Decreased appetite
     Dosage: UNK
     Route: 048
     Dates: start: 20120719
  3. QVAR [Concomitant]
     Active Substance: BECLOMETHASONE DIPROPIONATE
     Indication: Asthma
     Dosage: UNK
     Route: 055
     Dates: start: 20121227, end: 20141101
  4. XOPENEX [Concomitant]
     Active Substance: LEVALBUTEROL HYDROCHLORIDE
     Indication: Asthma
     Dosage: UNK
     Route: 055
     Dates: start: 20121227
  5. LASIX [Concomitant]
     Active Substance: FUROSEMIDE
     Indication: Cardiac disorder
     Dosage: UNK
     Route: 048
     Dates: start: 20130211
  6. NASONEX [Concomitant]
     Active Substance: MOMETASONE FUROATE
     Indication: Respiratory disorder
     Dosage: UNK
     Route: 045
     Dates: start: 20130401
  7. ACETAMINOPHEN [Concomitant]
     Active Substance: ACETAMINOPHEN
     Indication: Premedication
     Dosage: UNK
     Route: 048
     Dates: start: 20140512
  8. DULERA [Concomitant]
     Active Substance: FORMOTEROL FUMARATE DIHYDRATE\MOMETASONE FUROATE
     Indication: Respiratory disorder
     Dosage: UNK
     Route: 055
     Dates: start: 20150223
  9. PREVACID [Concomitant]
     Active Substance: LANSOPRAZOLE
     Indication: Gastrooesophageal reflux disease
     Dosage: UNK
     Route: 048
     Dates: start: 20150410
  10. PROTONIX [Concomitant]
     Active Substance: PANTOPRAZOLE SODIUM
     Indication: Gastrooesophageal reflux disease
     Dosage: UNK
     Route: 048
     Dates: start: 20150428
  11. SOMATROPIN [Concomitant]
     Active Substance: SOMATROPIN
     Indication: Growth hormone deficiency
     Dosage: UNK
     Route: 058
     Dates: start: 20160208
  12. DECADRON [Concomitant]
     Active Substance: DEXAMETHASONE
     Indication: Spinal cord injury cervical
     Dosage: UNK
     Route: 042
     Dates: start: 20211209, end: 20211219

REACTIONS (2)
  - Neck injury [Recovered/Resolved]
  - Venous occlusion [Recovered/Resolved with Sequelae]

NARRATIVE: CASE EVENT DATE: 20211116
